FAERS Safety Report 12164120 (Version 1)
Quarter: 2016Q1

REPORT INFORMATION
  Report Type: Spontaneous
  Country: US (occurrence: US)
  Receive Date: 20160309
  Receipt Date: 20160309
  Transmission Date: 20160526
  Serious: No
  Sender: FDA-Public Use
  Company Number: US-ROCHE-1680408

PATIENT
  Sex: Female

DRUGS (29)
  1. CELEBREX [Concomitant]
     Active Substance: CELECOXIB
     Route: 065
  2. HUMALOG [Concomitant]
     Active Substance: INSULIN LISPRO
     Dosage: BEFORE MEALS, QUICK PEN
     Route: 065
  3. SINGULAIR [Concomitant]
     Active Substance: MONTELUKAST SODIUM
     Dosage: AT BEDTIME
     Route: 065
  4. PERCOCET [Concomitant]
     Active Substance: ACETAMINOPHEN\OXYCODONE HYDROCHLORIDE
     Route: 065
  5. APIDRA SOLOSTAR [Concomitant]
     Active Substance: INSULIN GLULISINE
     Dosage: BEFORE BREAKFAST, LUNCH, AND DINNER
     Route: 065
  6. BENZONATATE PERLES [Concomitant]
     Dosage: AS NEEDED
     Route: 065
  7. LASIX [Concomitant]
     Active Substance: FUROSEMIDE
     Route: 065
  8. GABAPENTIN. [Concomitant]
     Active Substance: GABAPENTIN
     Dosage: 2 CAPSULES AT BEDTIME
     Route: 065
  9. DULERA [Concomitant]
     Active Substance: FORMOTEROL FUMARATE DIHYDRATE\MOMETASONE FUROATE
     Dosage: 2 PUFFS
     Route: 065
  10. COMPAZINE [Concomitant]
     Active Substance: PROCHLORPERAZINE MALEATE
     Dosage: AS NEEDED
     Route: 065
  11. DYAZIDE [Concomitant]
     Active Substance: HYDROCHLOROTHIAZIDE\TRIAMTERENE
     Dosage: 37.5/25 MG
     Route: 065
  12. PULMICORT NEBULIZER [Concomitant]
     Route: 065
  13. EPIPEN [Concomitant]
     Active Substance: EPINEPHRINE
  14. BYDUREON [Concomitant]
     Active Substance: EXENATIDE
     Dosage: 2MG/0.65ML
     Route: 065
     Dates: start: 20151203
  15. ALBUTEROL. [Concomitant]
     Active Substance: ALBUTEROL
     Dosage: NEBULIZER
     Route: 065
  16. PROTONIX (OMEPRAZOLE) [Concomitant]
     Route: 065
  17. ACCUPRIL [Concomitant]
     Active Substance: QUINAPRIL HYDROCHLORIDE
     Route: 065
  18. ALPHAGAN P [Concomitant]
     Active Substance: BRIMONIDINE TARTRATE
     Dosage: 1 DROP EACH EYE, MORNING AND EVENING
     Route: 065
  19. FLONASE [Concomitant]
     Active Substance: FLUTICASONE PROPIONATE
     Dosage: 2 SPRAY EACH NOSTRIL
     Route: 065
  20. RETINOL [Concomitant]
     Active Substance: RETINOL
     Dosage: EVERY OTHER DAY
     Route: 065
  21. EMLA [Concomitant]
     Active Substance: LIDOCAINE\PRILOCAINE
     Dosage: USE BEFORE APPOINTMENT FOR ULCERS
     Route: 065
  22. CLARITIN [Concomitant]
     Active Substance: LORATADINE
     Dosage: 2 TABLETS
     Route: 065
  23. XOLAIR [Suspect]
     Active Substance: OMALIZUMAB
     Indication: ASTHMA
     Route: 065
     Dates: start: 20151030
  24. ASPIRIN. [Concomitant]
     Active Substance: ASPIRIN
     Route: 065
  25. TRUSOPT [Concomitant]
     Active Substance: DORZOLAMIDE HYDROCHLORIDE
     Dosage: 1 DROP EACH EYE
     Route: 065
  26. NORCO [Concomitant]
     Active Substance: ACETAMINOPHEN\HYDROCODONE BITARTRATE
     Dosage: 5/325 MG
     Route: 065
  27. ASMANEX [Concomitant]
     Active Substance: MOMETASONE FUROATE
     Dosage: 1 PUFF
     Route: 065
  28. MORPHINE [Concomitant]
     Active Substance: MORPHINE
     Route: 065
  29. SILVADENE [Concomitant]
     Active Substance: SILVER SULFADIAZINE
     Route: 065

REACTIONS (2)
  - Pruritus [Recovering/Resolving]
  - Urticaria [Recovering/Resolving]
